FAERS Safety Report 5344266-2 (Version None)
Quarter: 2007Q2

REPORT INFORMATION
  Report Type: 
  Country: None (occurrence: None)
  Receive Date: 20070604
  Receipt Date: 20070508
  Transmission Date: 20071010
  Serious: No
  Sender: FDA-Public Use
  Company Number: US-JNJFOC-20070403168

PATIENT
  Age: 24 Year
  Sex: Female
  Weight: 58.97 kg

DRUGS (3)
  1. INVEGA [Suspect]
     Route: 048
  2. INVEGA [Suspect]
     Indication: PSYCHOTIC DISORDER
     Route: 048
  3. ZYPREXA [Concomitant]
     Indication: PSYCHOTIC DISORDER

REACTIONS (1)
  - EXTRAPYRAMIDAL DISORDER [None]
